FAERS Safety Report 6219903-0 (Version None)
Quarter: 2009Q2

REPORT INFORMATION
  Report Type: 
  Country: None (occurrence: None)
  Receive Date: 20090609
  Receipt Date: 20090527
  Transmission Date: 20091009
  Serious: Yes (Hospitalization)
  Sender: FDA-Public Use
  Company Number: A0737553A

PATIENT
  Age: 56 Year
  Sex: Male
  Weight: 97.3 kg

DRUGS (8)
  1. AVANDIA [Suspect]
     Dosage: 4MG TWICE PER DAY
     Route: 048
     Dates: start: 20000828, end: 20080107
  2. GLUCOTROL [Concomitant]
  3. INSULIN [Concomitant]
  4. LOPRESSOR [Concomitant]
  5. NORVASC [Concomitant]
  6. GLIPIZIDE [Concomitant]
  7. LEVITRA [Concomitant]
  8. AMBIEN [Concomitant]

REACTIONS (3)
  - CARDIAC FAILURE CONGESTIVE [None]
  - MYOCARDIAL INFARCTION [None]
  - TRANSIENT ISCHAEMIC ATTACK [None]
